FAERS Safety Report 14412800 (Version 2)
Quarter: 2018Q1

REPORT INFORMATION
  Report Type: Spontaneous
  Country: US (occurrence: US)
  Receive Date: 20180119
  Receipt Date: 20180214
  Transmission Date: 20180509
  Serious: Yes (Other)
  Sender: FDA-Public Use
  Company Number: US-TEVA-2018-US-846283

PATIENT
  Age: 23 Year
  Sex: Female

DRUGS (1)
  1. PARAGARD T 380A [Suspect]
     Active Substance: COPPER
     Indication: CONTRACEPTION
     Route: 065
     Dates: start: 20171128

REACTIONS (5)
  - Dyspareunia [Recovered/Resolved with Sequelae]
  - Device dislocation [Recovered/Resolved]
  - Pelvic pain [Recovered/Resolved with Sequelae]
  - Vaginal haemorrhage [Recovered/Resolved with Sequelae]
  - Muscle spasms [Unknown]

NARRATIVE: CASE EVENT DATE: 201712
